FAERS Safety Report 19442698 (Version 1)
Quarter: 2021Q2

REPORT INFORMATION
  Report Type: Spontaneous
  Country: US (occurrence: US)
  Receive Date: 20210618
  Receipt Date: 20210618
  Transmission Date: 20210717
  Serious: No
  Sender: FDA-Public Use
  Company Number: None

PATIENT
  Sex: Female

DRUGS (1)
  1. OTEZLA [Suspect]
     Active Substance: APREMILAST
     Indication: IMMUNODEFICIENCY COMMON VARIABLE
     Route: 048
     Dates: start: 20190726

REACTIONS (5)
  - Seasonal allergy [None]
  - Psoriasis [None]
  - Rash [None]
  - Somnolence [None]
  - Pruritus [None]
